APPROVED DRUG PRODUCT: RISPERIDONE
Active Ingredient: RISPERIDONE
Strength: 3MG
Dosage Form/Route: TABLET;ORAL
Application: A077953 | Product #005
Applicant: APOTEX INC
Approved: Sep 15, 2008 | RLD: No | RS: No | Type: DISCN